FAERS Safety Report 12464904 (Version 3)
Quarter: 2017Q3

REPORT INFORMATION
  Report Type: Report from Study
  Country: CO (occurrence: CO)
  Receive Date: 20160614
  Receipt Date: 20170821
  Transmission Date: 20171127
  Serious: Yes (Hospitalization)
  Sender: FDA-Public Use
  Company Number: CO-JNJFOC-20160609398

PATIENT
  Age: 66 Year
  Sex: Male
  Weight: 67 kg

DRUGS (1)
  1. RISPERDAL CONSTA [Suspect]
     Active Substance: RISPERIDONE
     Indication: SCHIZOPHRENIA
     Route: 030
     Dates: start: 20130202

REACTIONS (5)
  - Hallucination, auditory [Recovered/Resolved]
  - Aggression [Recovered/Resolved]
  - Insomnia [Recovered/Resolved]
  - Sensory disturbance [Recovered/Resolved]
  - Hallucination, visual [Recovered/Resolved]

NARRATIVE: CASE EVENT DATE: 20160608
